FAERS Safety Report 9537483 (Version 1)
Quarter: 2013Q3

REPORT INFORMATION
  Report Type: Spontaneous
  Country: DE (occurrence: DE)
  Receive Date: 20130919
  Receipt Date: 20130919
  Transmission Date: 20140515
  Serious: Yes (Other)
  Sender: FDA-Public Use
  Company Number: DE-GLAXOSMITHKLINE-D0081141A

PATIENT
  Age: 37 Year
  Sex: Female
  Weight: 63 kg

DRUGS (2)
  1. ARIXTRA [Suspect]
     Indication: FACTOR V LEIDEN MUTATION
     Dosage: 2.5MG PER DAY
     Route: 058
  2. ASS [Concomitant]
     Indication: FACTOR V LEIDEN MUTATION
     Dosage: 100MG PER DAY
     Route: 048

REACTIONS (2)
  - Foetal death [Unknown]
  - Exposure during pregnancy [Unknown]
